FAERS Safety Report 8435279-2 (Version None)
Quarter: 2012Q2

REPORT INFORMATION
  Report Type: 
  Country: None (occurrence: None)
  Receive Date: 20120614
  Receipt Date: 20120611
  Transmission Date: 20120825
  Serious: Yes (Other)
  Sender: FDA-Public Use
  Company Number: ZA-PFIZER INC-2012140824

PATIENT
  Sex: Female

DRUGS (7)
  1. VARENICLINE TARTRATE [Suspect]
     Indication: SMOKING CESSATION THERAPY
     Dosage: 0.5 MG, 1X/DAY
     Route: 048
     Dates: start: 20120303, end: 20120501
  2. ALPRAZOLAM [Concomitant]
     Indication: DEPRESSION
     Dosage: UNK
     Route: 048
  3. LEGALON [Concomitant]
     Dosage: UNK
     Route: 048
  4. ISOPTIN SR [Concomitant]
     Indication: HYPERTENSION
     Dosage: UNK
     Route: 048
  5. IRBEWIN [Concomitant]
     Indication: HYPERTENSION
     Dosage: UNK
     Route: 048
  6. DAPAMAX [Concomitant]
     Indication: HYPERTENSION
     Dosage: UNK
     Route: 048
  7. LIPITOR [Concomitant]
     Indication: HYPERCHOLESTEROLAEMIA
     Dosage: UNK
     Route: 048

REACTIONS (4)
  - ATRIAL FIBRILLATION [None]
  - DYSPNOEA [None]
  - LUNG INFECTION [None]
  - COUGH [None]
